FAERS Safety Report 5748697-8 (Version None)
Quarter: 2008Q2

REPORT INFORMATION
  Report Type: 
  Country: None (occurrence: None)
  Receive Date: 20080521
  Receipt Date: 20080512
  Transmission Date: 20081010
  Serious: Yes (Hospitalization)
  Sender: FDA-Public Use
  Company Number: GXKR2008SE04384

PATIENT
  Age: 28 Year
  Sex: Female

DRUGS (1)
  1. CLOMIPRAMINE (NGX) (CLOMIPRAMINE) TABLET, 75 MG [Suspect]
     Indication: INCORRECT DOSE ADMINISTERED
     Dosage: 60 DF, ONCE/SINGLE, ORAL
     Route: 048

REACTIONS (2)
  - INTENTIONAL OVERDOSE [None]
  - SUICIDE ATTEMPT [None]
